FAERS Safety Report 24293989 (Version 1)
Quarter: 2024Q3

REPORT INFORMATION
  Report Type: Spontaneous
  Country: US (occurrence: None)
  Receive Date: 20240906
  Receipt Date: 20240906
  Transmission Date: 20241017
  Serious: No
  Sender: DOMPE FARMACEUTICI
  Company Number: US-FARMAPROD-202308-202403-0956

PATIENT
  Age: 78 Year
  Sex: Female
  Weight: 57.88 kg

DRUGS (13)
  1. OXERVATE [Suspect]
     Active Substance: CENEGERMIN-BKBJ
     Indication: Neurotrophic keratopathy
     Route: 047
     Dates: start: 20240307
  2. OXERVATE [Suspect]
     Active Substance: CENEGERMIN-BKBJ
     Indication: Corneal disorder
  3. VITAMINS [Concomitant]
     Active Substance: VITAMINS
     Dosage: ONE-A-DAY WOMEN^S COMPLETE
  4. RESTASIS [Concomitant]
     Active Substance: CYCLOSPORINE
  5. VALTREX [Concomitant]
     Active Substance: VALACYCLOVIR HYDROCHLORIDE
  6. IRBESARTAN [Concomitant]
     Active Substance: IRBESARTAN
  7. TRETINOIN [Concomitant]
     Active Substance: TRETINOIN
  8. EPIPEN [Concomitant]
     Active Substance: EPINEPHRINE
     Dosage: 0.3MG/0.3 AUTO INJCTECTOR
  9. BACLOFEN [Concomitant]
     Active Substance: BACLOFEN
  10. SYSTANE (HYPROMELLOSE 2910 (4000 MPA.S)) [Concomitant]
     Active Substance: HYPROMELLOSE 2910 (4000 MPA.S)
     Dosage: 0.3 %-0.4%
  11. PAROXETINE HYDROCHLORIDE [Concomitant]
     Active Substance: PAROXETINE HYDROCHLORIDE\PAROXETINE HYDROCHLORIDE ANHYDROUS
  12. RECLAST [Concomitant]
     Active Substance: ZOLEDRONIC ACID
     Dosage: 5 MG/100ML PIGGYBACK BOTTLE
  13. ONE-A-DAY WOMEN^S COMPLETE [Concomitant]

REACTIONS (7)
  - Ocular discomfort [Unknown]
  - Eye irritation [Unknown]
  - Dry eye [Unknown]
  - Cough [Unknown]
  - Eye discharge [Unknown]
  - Respiratory tract congestion [Unknown]
  - Eyelid ptosis [Unknown]

NARRATIVE: CASE EVENT DATE: 20240301
